FAERS Safety Report 8323472 (Version 2)
Quarter: 2014Q2

REPORT INFORMATION
  Report Type: Spontaneous
  Country: US (occurrence: US)
  Receive Date: 20120105
  Receipt Date: 20140422
  Transmission Date: 20141212
  Serious: Yes (Other)
  Sender: FDA-Public Use
  Company Number: US-ASTRAZENECA-2012SE00348

PATIENT
  Age: 68 Year
  Sex: Female

DRUGS (4)
  1. ARIMIDEX [Suspect]
     Route: 048
  2. LISINOPRIL/ HCTZ [Suspect]
     Dosage: 20/25 MG
     Route: 048
  3. CALCIUM [Concomitant]
  4. VITAMIN D3 [Concomitant]

REACTIONS (3)
  - Neoplasm malignant [Recovered/Resolved]
  - Malaise [Unknown]
  - Hot flush [Unknown]
